FAERS Safety Report 12571362 (Version 2)
Quarter: 2017Q1

REPORT INFORMATION
  Report Type: Report from Study
  Country: None (occurrence: US)
  Receive Date: 20160719
  Receipt Date: 20170202
  Transmission Date: 20170428
  Serious: Yes (Hospitalization)
  Sender: FDA-Public Use
  Company Number: US-ABBVIE-16P-163-1673498-00

PATIENT
  Age: 81 Year
  Sex: Male
  Weight: 87.7 kg

DRUGS (17)
  1. LOMOTIL [Concomitant]
     Active Substance: ATROPINE SULFATE\DIPHENOXYLATE HYDROCHLORIDE
     Indication: DIARRHOEA
     Dosage: 2.5-0.025 MG
     Route: 048
     Dates: start: 20160701, end: 20160727
  2. CEFTRIAXONE. [Concomitant]
     Active Substance: CEFTRIAXONE
     Indication: PNEUMONIA
     Route: 048
     Dates: start: 20160629
  3. VENETOCLAX [Suspect]
     Active Substance: VENETOCLAX
     Route: 048
     Dates: start: 20160313, end: 20160704
  4. METOPROLOL. [Concomitant]
     Active Substance: METOPROLOL
     Indication: SUPRAVENTRICULAR TACHYCARDIA
     Route: 048
     Dates: start: 20160504, end: 20160926
  5. CENTRUM SILVER [Concomitant]
     Active Substance: MINERALS\VITAMINS
     Indication: VITAMIN SUPPLEMENTATION
     Route: 048
     Dates: start: 20160302, end: 20160709
  6. ENALAPRIL [Concomitant]
     Active Substance: ENALAPRIL
     Indication: ATRIAL FIBRILLATION
     Route: 048
     Dates: start: 20160628
  7. NORMAL SALINE SOLUTION [Concomitant]
     Indication: PROPHYLAXIS
  8. ACYCLOVIR. [Concomitant]
     Active Substance: ACYCLOVIR
     Indication: ANTIFUNGAL PROPHYLAXIS
     Route: 048
     Dates: start: 20160310
  9. ALLOPURINOL. [Concomitant]
     Active Substance: ALLOPURINOL
     Indication: PROPHYLAXIS
  10. VENETOCLAX [Suspect]
     Active Substance: VENETOCLAX
     Route: 048
     Dates: start: 20160311, end: 20160311
  11. NORMAL SALINE SOLUTION [Concomitant]
     Indication: FLUID REPLACEMENT
  12. GABAPENTIN. [Concomitant]
     Active Substance: GABAPENTIN
     Indication: NEUROPATHY PERIPHERAL
     Route: 048
     Dates: start: 20160131
  13. ALLOPURINOL. [Concomitant]
     Active Substance: ALLOPURINOL
     Indication: TUMOUR LYSIS SYNDROME
     Route: 048
     Dates: start: 20160307, end: 20160315
  14. NORMAL SALINE SOLUTION [Concomitant]
     Indication: TUMOUR LYSIS SYNDROME
     Route: 042
     Dates: start: 20160307, end: 20160315
  15. VENETOCLAX [Suspect]
     Active Substance: VENETOCLAX
     Indication: ACUTE MYELOID LEUKAEMIA
     Route: 048
     Dates: start: 20160310, end: 20160310
  16. VENETOCLAX [Suspect]
     Active Substance: VENETOCLAX
     Route: 048
     Dates: start: 20160312, end: 20160312
  17. DECITABINE. [Suspect]
     Active Substance: DECITABINE
     Indication: ACUTE MYELOID LEUKAEMIA
     Dosage: DAYS 1 THRU 5 OF ALL CYCLES, CYCLE=28 DAYS
     Route: 042
     Dates: start: 20160310

REACTIONS (1)
  - Pancytopenia [Recovered/Resolved]

NARRATIVE: CASE EVENT DATE: 20160708
